FAERS Safety Report 23500482 (Version 1)
Quarter: 2024Q1

REPORT INFORMATION
  Report Type: Report from Study
  Country: US (occurrence: US)
  Receive Date: 20240208
  Receipt Date: 20240208
  Transmission Date: 20240410
  Serious: Yes (Hospitalization)
  Sender: FDA-Public Use
  Company Number: US-GILEAD-2024-0661042

PATIENT
  Sex: Female

DRUGS (14)
  1. AZTREONAM LYSINE [Suspect]
     Active Substance: AZTREONAM LYSINE
     Indication: Pseudomonas infection
     Dosage: 75 MG, TID, NHALE 1 VIAL VIA ALTERA NEBULIZER CYCLING 28 DAYS ON AND 28 DAYS OFF
     Route: 055
  2. CLOBAZAM [Concomitant]
     Active Substance: CLOBAZAM
  3. PROPRANOLOL [Concomitant]
     Active Substance: PROPRANOLOL HYDROCHLORIDE
  4. ADVAIR HFA [Concomitant]
     Active Substance: FLUTICASONE PROPIONATE\SALMETEROL XINAFOATE
  5. NEXIUM I.V. [Concomitant]
     Active Substance: ESOMEPRAZOLE SODIUM
  6. NITROFURANTOIN [Concomitant]
     Active Substance: NITROFURANTOIN
  7. TOBRAMYCIN [Concomitant]
     Active Substance: TOBRAMYCIN
  8. CLONIDINE [Concomitant]
     Active Substance: CLONIDINE
  9. DIETARY SUPPLEMENT [Concomitant]
     Active Substance: DIETARY SUPPLEMENT
  10. PULMOZYME [Concomitant]
     Active Substance: DORNASE ALFA
  11. KEPPRA [Concomitant]
     Active Substance: LEVETIRACETAM
  12. MINERALS\VITAMINS [Concomitant]
     Active Substance: MINERALS\VITAMINS
  13. RUFINAMIDE [Concomitant]
     Active Substance: RUFINAMIDE
  14. BACLOFEN [Concomitant]
     Active Substance: BACLOFEN

REACTIONS (2)
  - Urinary tract infection [Unknown]
  - Off label use [Not Recovered/Not Resolved]
